FAERS Safety Report 18372974 (Version 3)
Quarter: 2021Q3

REPORT INFORMATION
  Report Type: Spontaneous
  Country: GB (occurrence: GB)
  Receive Date: 20201012
  Receipt Date: 20210721
  Transmission Date: 20211014
  Serious: Yes (Hospitalization, Other)
  Sender: FDA-Public Use
  Company Number: GB-MYLANLABS-2020M1082571

PATIENT
  Age: 68 Year
  Sex: Female

DRUGS (1)
  1. CLOZARIL [Suspect]
     Active Substance: CLOZAPINE
     Indication: SCHIZOPHRENIA
     Dosage: 67.5 MILLIGRAM, QD
     Route: 048
     Dates: start: 20200717

REACTIONS (6)
  - Transient ischaemic attack [Unknown]
  - White blood cell count decreased [Recovered/Resolved]
  - Cerebrovascular accident [Unknown]
  - General physical health deterioration [Unknown]
  - Delirium [Unknown]
  - Feeling abnormal [Unknown]

NARRATIVE: CASE EVENT DATE: 2020
